FAERS Safety Report 23132358 (Version 1)
Quarter: 2023Q4

REPORT INFORMATION
  Report Type: Spontaneous
  Country: JP (occurrence: JP)
  Receive Date: 20231101
  Receipt Date: 20231101
  Transmission Date: 20240110
  Serious: Yes (Other)
  Sender: FDA-Public Use
  Company Number: JP-BEH-2023164654

PATIENT
  Age: 12 Year
  Sex: Female

DRUGS (2)
  1. BERINERT [Suspect]
     Active Substance: HUMAN C1-ESTERASE INHIBITOR
     Indication: Prophylaxis
     Dosage: 2400 INTERNATIONAL UNIT, BIW
     Route: 058
     Dates: start: 20230101
  2. FIRAZYR [Concomitant]
     Active Substance: ICATIBANT ACETATE
     Route: 058

REACTIONS (3)
  - Hereditary angioedema [Unknown]
  - Abdominal pain [Unknown]
  - Injection site pain [Unknown]
